FAERS Safety Report 17646830 (Version 4)
Quarter: 2020Q2

REPORT INFORMATION
  Report Type: Report from Study
  Country: FR (occurrence: FR)
  Receive Date: 20200408
  Receipt Date: 20200427
  Transmission Date: 20200713
  Serious: Yes (Life-Threatening)
  Sender: FDA-Public Use
  Company Number: FR-PFIZER INC-2020141991

PATIENT
  Weight: 19.2 kg

DRUGS (7)
  1. POLARAMINE [Concomitant]
     Active Substance: DEXCHLORPHENIRAMINE MALEATE
     Dosage: 2.5 MG, 1X/DAY
     Dates: start: 20200327, end: 20200327
  2. PARACETAMOL [Concomitant]
     Active Substance: ACETAMINOPHEN
     Dosage: 270 MG, 4X/DAY
     Dates: start: 20200327
  3. ONDANSETRON [Concomitant]
     Active Substance: ONDANSETRON
     Dosage: 4 MG, 1X/DAY
     Dates: start: 20200327, end: 20200328
  4. MYLOTARG [Suspect]
     Active Substance: GEMTUZUMAB OZOGAMICIN
     Indication: ACUTE MYELOID LEUKAEMIA
     Dosage: 2.3 MG, UNK (OTHER)
     Route: 042
     Dates: start: 20200327, end: 20200327
  5. TAZOCILLINE [Concomitant]
     Active Substance: PIPERACILLIN SODIUM\TAZOBACTAM SODIUM
     Dosage: 1.4 G, 4X/DAY
     Dates: start: 20200327
  6. ALIZAPRIDE [Concomitant]
     Active Substance: ALIZAPRIDE
     Dosage: 20 MG, 2X/DAY
     Dates: start: 20200327
  7. MITOXANTRONE [Suspect]
     Active Substance: MITOXANTRONE HYDROCHLORIDE
     Indication: ACUTE MYELOID LEUKAEMIA
     Dosage: 12 MG/M2, 1X/DAY
     Route: 042
     Dates: start: 20200324, end: 20200327

REACTIONS (3)
  - Anaphylactic reaction [Recovered/Resolved]
  - Pyrexia [Recovered/Resolved]
  - Hypertension [Recovered/Resolved]

NARRATIVE: CASE EVENT DATE: 20200327
